FAERS Safety Report 7356052-2 (Version None)
Quarter: 2011Q1

REPORT INFORMATION
  Report Type: 
  Country: None (occurrence: None)
  Receive Date: 20110316
  Receipt Date: 20110308
  Transmission Date: 20110831
  Serious: Yes (Hospitalization)
  Sender: FDA-Public Use
  Company Number: CO-ELI_LILLY_AND_COMPANY-CO201103002896

PATIENT
  Age: 44 Year
  Sex: Male

DRUGS (4)
  1. OLANZAPINE [Suspect]
     Indication: SCHIZOPHRENIA
     Dosage: 10 MG, DAILY (1/D)
  2. OLANZAPINE [Suspect]
     Dosage: 20 MG, DAILY (1/D)
  3. LITHIUM [Concomitant]
     Indication: SCHIZOPHRENIA
     Dosage: 1.2 MG, DAILY (1/D)
  4. CARBAMAZEPINE [Concomitant]
     Indication: CONVULSION
     Dosage: 400 MG, DAILY (1/D)

REACTIONS (1)
  - TOXIC EPIDERMAL NECROLYSIS [None]
